FAERS Safety Report 5291962-1 (Version None)
Quarter: 2007Q2

REPORT INFORMATION
  Report Type: 
  Country: None (occurrence: None)
  Receive Date: 20070406
  Receipt Date: 20070406
  Transmission Date: 20071010
  Serious: Yes (Other)
  Sender: FDA-Public Use
  Company Number: None

PATIENT
  Age: 12 Year
  Sex: Male
  Weight: 45.3597 kg

DRUGS (3)
  1. TEGRETOL [Suspect]
     Indication: CONVULSION
     Dosage: 2 DAILY PO
     Route: 048
     Dates: start: 19850101, end: 19910101
  2. TEGRETOL [Suspect]
     Indication: ECZEMA
     Dosage: 2 DAILY PO
     Route: 048
     Dates: start: 19850101, end: 19910101
  3. PROTOPIC [Suspect]
     Indication: SKIN DISORDER
     Dosage: AS NEEDED
     Dates: start: 19990101, end: 20030101

REACTIONS (4)
  - DERMATITIS [None]
  - LYMPHADENOPATHY [None]
  - LYMPHATIC DISORDER [None]
  - MALAISE [None]
